FAERS Safety Report 25925571 (Version 1)
Quarter: 2025Q4

REPORT INFORMATION
  Report Type: Spontaneous
  Country: US (occurrence: None)
  Receive Date: 20251015
  Receipt Date: 20251015
  Transmission Date: 20260119
  Serious: Yes (Hospitalization)
  Sender: FDA-CTU
  Company Number: None

PATIENT
  Sex: Female
  Weight: 69.75 kg

DRUGS (1)
  1. CAPECITABINE [Suspect]
     Active Substance: CAPECITABINE
     Indication: Pancreatic carcinoma
     Dosage: OTHER FREQUENCY : 2 TIMES A DAY ON DAYS 1-14 OF EVERY 21-DAY CYCLE;?
     Route: 048
     Dates: start: 20250528

REACTIONS (2)
  - Gout [None]
  - Anaemia [None]
